FAERS Safety Report 7146689-8 (Version None)
Quarter: 2010Q4

REPORT INFORMATION
  Report Type: 
  Country: None (occurrence: None)
  Receive Date: 20101208
  Receipt Date: 20101122
  Transmission Date: 20110411
  Serious: Yes (Other)
  Sender: FDA-Public Use
  Company Number: US-AMGEN-KDL238353

PATIENT

DRUGS (4)
  1. ENBREL [Suspect]
     Indication: PRODUCT USED FOR UNKNOWN INDICATION
     Dosage: 50 MG, QWK
     Route: 058
     Dates: start: 20070727
  2. ENBREL [Suspect]
     Dosage: 50 MG, QWK
     Route: 058
     Dates: start: 20070701
  3. METHOTREXATE [Concomitant]
     Dosage: 1 MG, QWK
     Route: 048
     Dates: start: 20050101
  4. RITUXAN [Concomitant]

REACTIONS (16)
  - ABSCESS LIMB [None]
  - BLOOD CREATINE PHOSPHOKINASE INCREASED [None]
  - CATARACT [None]
  - DERMATOMYOSITIS [None]
  - EYE DISORDER [None]
  - FATIGUE [None]
  - HYPOAESTHESIA [None]
  - INJECTION SITE ERYTHEMA [None]
  - INJECTION SITE PAIN [None]
  - INJECTION SITE PRURITUS [None]
  - MUSCULAR WEAKNESS [None]
  - NASOPHARYNGITIS [None]
  - PARAESTHESIA [None]
  - RASH GENERALISED [None]
  - VISUAL ACUITY REDUCED [None]
  - VISUAL IMPAIRMENT [None]
